FAERS Safety Report 23408743 (Version 3)
Quarter: 2024Q1

REPORT INFORMATION
  Report Type: Spontaneous
  Country: IT (occurrence: IT)
  Receive Date: 20240117
  Receipt Date: 20240328
  Transmission Date: 20240410
  Serious: Yes (Other)
  Sender: FDA-Public Use
  Company Number: IT-UCBSA-2024001906

PATIENT
  Age: 60 Year
  Sex: Male

DRUGS (1)
  1. BIMEKIZUMAB [Suspect]
     Active Substance: BIMEKIZUMAB
     Indication: Psoriasis
     Dosage: UNK

REACTIONS (2)
  - Oesophageal candidiasis [Unknown]
  - Oral candidiasis [Unknown]
